FAERS Safety Report 12111394 (Version 1)
Quarter: 2016Q1

REPORT INFORMATION
  Report Type: Spontaneous
  Country: RU (occurrence: RU)
  Receive Date: 20160224
  Receipt Date: 20160224
  Transmission Date: 20160526
  Serious: Yes (Other)
  Sender: FDA-Public Use
  Company Number: RU-ELI_LILLY_AND_COMPANY-RU201602007212

PATIENT
  Age: 42 Year
  Sex: Female

DRUGS (7)
  1. IRINOTECAN [Concomitant]
     Active Substance: IRINOTECAN
     Dosage: 9 COURSES
     Dates: start: 201401, end: 201404
  2. ERBITUX [Suspect]
     Active Substance: CETUXIMAB
     Dosage: 250 MG/M2, WEEKLY (1/W)
     Route: 065
     Dates: end: 201306
  3. IRINOTECAN [Concomitant]
     Active Substance: IRINOTECAN
     Indication: COLON CANCER
     Dosage: 350 MG/M2, UNK
     Route: 065
     Dates: start: 201302
  4. IRINOTECAN [Concomitant]
     Active Substance: IRINOTECAN
     Dosage: UNK
     Dates: end: 201409
  5. ERBITUX [Suspect]
     Active Substance: CETUXIMAB
     Indication: COLON CANCER
     Dosage: 400 MG/M2, WEEKLY (1/W)
     Route: 065
     Dates: start: 201303
  6. ERBITUX [Suspect]
     Active Substance: CETUXIMAB
     Dosage: UNK
     Route: 065
     Dates: start: 201401, end: 201404
  7. ERBITUX [Suspect]
     Active Substance: CETUXIMAB
     Dosage: UNK
     Route: 065
     Dates: end: 201409

REACTIONS (4)
  - Rash [Unknown]
  - Diarrhoea [Unknown]
  - Fatigue [Unknown]
  - Metastases to lung [Unknown]

NARRATIVE: CASE EVENT DATE: 201401
